FAERS Safety Report 20074947 (Version 2)
Quarter: 2021Q4

REPORT INFORMATION
  Report Type: Other
  Country: US (occurrence: None)
  Receive Date: 20211116
  Receipt Date: 20211209
  Transmission Date: 20220303
  Serious: Yes (Hospitalization)
  Sender: FDA-Public Use
  Company Number: US-ROCHE-2951199

PATIENT
  Age: 47 Year
  Sex: Female

DRUGS (21)
  1. OCRELIZUMAB [Suspect]
     Active Substance: OCRELIZUMAB
     Indication: Multiple sclerosis
     Dosage: FIRST ADMINISTRATION
     Route: 042
     Dates: start: 20200310, end: 20200310
  2. OCRELIZUMAB [Suspect]
     Active Substance: OCRELIZUMAB
     Dosage: SECOND ADMINISTRATION
     Route: 042
     Dates: start: 20200324, end: 20200324
  3. EMGALITY [Concomitant]
     Active Substance: GALCANEZUMAB-GNLM
     Dates: start: 20191210
  4. ESCITALOPRAM [Concomitant]
     Active Substance: ESCITALOPRAM OXALATE
     Dates: start: 20190101
  5. ESTRADIOL [Concomitant]
     Active Substance: ESTRADIOL
     Dates: start: 20180101
  6. IMITREX [Concomitant]
     Active Substance: SUMATRIPTAN SUCCINATE
     Dates: start: 20170101
  7. PROPRANOLOL [Concomitant]
     Active Substance: PROPRANOLOL HYDROCHLORIDE
     Dates: start: 20150101
  8. TRAMADOL [Concomitant]
     Active Substance: TRAMADOL
     Dates: start: 20170101
  9. ADVIL PM [Concomitant]
     Active Substance: DIPHENHYDRAMINE CITRATE\IBUPROFEN
     Indication: Insomnia
     Dates: start: 20200101
  10. BUPROPION [Concomitant]
     Active Substance: BUPROPION
     Indication: Depression
     Dates: start: 20200801
  11. HYDROXYSTILBAMIDINE [Concomitant]
     Active Substance: HYDROXYSTILBAMIDINE
     Indication: Pruritus
     Dates: start: 20200801
  12. VITAMIN D3 [Concomitant]
     Active Substance: CHOLECALCIFEROL
     Dates: start: 20200801
  13. DIAZEPAM [Concomitant]
     Active Substance: DIAZEPAM
     Dates: start: 20210710
  14. OXYCODONE [Concomitant]
     Active Substance: OXYCODONE
     Dates: start: 20210711
  15. ATORVASTATIN [Concomitant]
     Active Substance: ATORVASTATIN
     Dates: start: 20210723
  16. VENLAFAXINE [Concomitant]
     Active Substance: VENLAFAXINE HYDROCHLORIDE
     Dates: start: 20210723
  17. LYRICA [Concomitant]
     Active Substance: PREGABALIN
     Dates: start: 20201105, end: 20210716
  18. LYRICA [Concomitant]
     Active Substance: PREGABALIN
     Dates: start: 20210717
  19. LYRICA [Concomitant]
     Active Substance: PREGABALIN
     Dates: start: 20210717
  20. RITALIN [Concomitant]
     Active Substance: METHYLPHENIDATE HYDROCHLORIDE
     Dates: start: 20200310, end: 20200701
  21. RITALIN [Concomitant]
     Active Substance: METHYLPHENIDATE HYDROCHLORIDE
     Dates: start: 20210714

REACTIONS (1)
  - COVID-19 [Recovered/Resolved]

NARRATIVE: CASE EVENT DATE: 20210916
